FAERS Safety Report 11637338 (Version 1)
Quarter: 2015Q4

REPORT INFORMATION
  Report Type: Spontaneous
  Country: US (occurrence: US)
  Receive Date: 20151016
  Receipt Date: 20151016
  Transmission Date: 20160304
  Serious: Yes (Hospitalization)
  Sender: FDA-Public Use
  Company Number: US-APOTEX-2015AP013446

PATIENT

DRUGS (6)
  1. TRAZODONE HYDROCHLORIDE. [Suspect]
     Active Substance: TRAZODONE HYDROCHLORIDE
     Indication: PRODUCT USED FOR UNKNOWN INDICATION
     Dosage: 50 MG, QD
     Route: 048
     Dates: start: 20140224, end: 20150426
  2. LATUDA [Suspect]
     Active Substance: LURASIDONE HYDROCHLORIDE
     Indication: RESTLESSNESS
     Dosage: 80 MG, UNK
     Route: 048
     Dates: start: 20150427
  3. TRAZODONE HYDROCHLORIDE. [Suspect]
     Active Substance: TRAZODONE HYDROCHLORIDE
     Dosage: 100 MG, TID
     Route: 048
     Dates: start: 20150427
  4. TRAZODONE HYDROCHLORIDE. [Suspect]
     Active Substance: TRAZODONE HYDROCHLORIDE
     Dosage: 300 MG, QD
     Route: 048
  5. LATUDA [Suspect]
     Active Substance: LURASIDONE HYDROCHLORIDE
     Dosage: 120 MG, UNK
     Route: 048
     Dates: end: 20150716
  6. LATUDA [Suspect]
     Active Substance: LURASIDONE HYDROCHLORIDE
     Indication: FEELING OF RELAXATION
     Dosage: 40 MG, UNK
     Route: 048
     Dates: start: 20140506, end: 20150426

REACTIONS (12)
  - Conversion disorder [Not Recovered/Not Resolved]
  - Insomnia [Not Recovered/Not Resolved]
  - Frustration [Not Recovered/Not Resolved]
  - Aggression [Not Recovered/Not Resolved]
  - Confusional state [Not Recovered/Not Resolved]
  - Soliloquy [Unknown]
  - Weight increased [Unknown]
  - Hallucination [Not Recovered/Not Resolved]
  - Diarrhoea [Unknown]
  - Emotional distress [Not Recovered/Not Resolved]
  - Abnormal behaviour [Not Recovered/Not Resolved]
  - Pyrexia [Unknown]
